FAERS Safety Report 4705109-0 (Version None)
Quarter: 2005Q3

REPORT INFORMATION
  Report Type: 
  Country: None (occurrence: None)
  Receive Date: 20050701
  Receipt Date: 20050617
  Transmission Date: 20060218
  Serious: Yes (Hospitalization)
  Sender: FDA-Public Use
  Company Number: JP-JNJFOC-20050605902

PATIENT
  Age: 44 Year
  Sex: Male

DRUGS (3)
  1. ITRACONAZOLE [Suspect]
     Indication: DRUG USE FOR UNKNOWN INDICATION
     Route: 049
     Dates: start: 20050502, end: 20050516
  2. FLUCONAZOLE [Concomitant]
     Indication: CANDIDA PNEUMONIA
     Dates: start: 20050403
  3. FOSFLUCONAZOLE [Concomitant]
     Indication: CANDIDA PNEUMONIA
     Route: 049

REACTIONS (1)
  - RENAL FAILURE ACUTE [None]
